FAERS Safety Report 14075492 (Version 5)
Quarter: 2018Q2

REPORT INFORMATION
  Report Type: Spontaneous
  Country: US (occurrence: US)
  Receive Date: 20171011
  Receipt Date: 20180420
  Transmission Date: 20180711
  Serious: Yes (Death, Other)
  Sender: FDA-Public Use
  Company Number: PHHY2016US147645

PATIENT
  Age: 61 Year
  Sex: Male

DRUGS (30)
  1. MORPHINE [Concomitant]
     Active Substance: MORPHINE
     Dosage: 60 MG, Q8H
     Route: 048
     Dates: start: 20161108, end: 20170113
  2. JAKAFI [Suspect]
     Active Substance: RUXOLITINIB
     Dosage: 5 MG, BID
     Route: 048
     Dates: start: 20161230
  3. PACRITINIB [Concomitant]
     Active Substance: PACRITINIB
     Indication: PRIMARY MYELOFIBROSIS
     Dosage: UNK
     Route: 065
     Dates: end: 2016
  4. MORPHINE [Concomitant]
     Active Substance: MORPHINE
     Dosage: 90 MG, Q8H
     Route: 048
     Dates: start: 20161122
  5. ASPIRIN. [Concomitant]
     Active Substance: ASPIRIN
     Indication: PRODUCT USED FOR UNKNOWN INDICATION
     Dosage: 81 MG, QD
     Route: 048
     Dates: start: 20150721
  6. FUROSEMIDE. [Concomitant]
     Active Substance: FUROSEMIDE
     Indication: PRODUCT USED FOR UNKNOWN INDICATION
     Dosage: 20 MG, QD (FOR 30 DAYS)
     Route: 048
     Dates: start: 20160927
  7. JAKAFI [Suspect]
     Active Substance: RUXOLITINIB
     Dosage: 10 MG, BID
     Route: 048
     Dates: start: 20161209
  8. ALLOPURINOL. [Concomitant]
     Active Substance: ALLOPURINOL
     Indication: PRODUCT USED FOR UNKNOWN INDICATION
     Dosage: 300 MG, QD ( FOR 30 DAYS  )
     Route: 048
     Dates: start: 20151220
  9. POLYETHYLENE GLYCOL 3350. [Concomitant]
     Active Substance: POLYETHYLENE GLYCOL 3350
     Indication: PRODUCT USED FOR UNKNOWN INDICATION
     Dosage: 17 G, PRN
     Route: 048
     Dates: start: 20160218
  10. JAKAFI [Suspect]
     Active Substance: RUXOLITINIB
     Dosage: 5 MG, BID
     Route: 048
     Dates: start: 20161122, end: 20170112
  11. ALPRAZOLAM. [Concomitant]
     Active Substance: ALPRAZOLAM
     Indication: PRODUCT USED FOR UNKNOWN INDICATION
     Dosage: 1 MG
     Route: 065
     Dates: start: 20160916
  12. HYDROCODONE BITARTRATE AND ACETAMINOPHEN [Concomitant]
     Active Substance: ACETAMINOPHEN\HYDROCODONE BITARTRATE
     Indication: PRODUCT USED FOR UNKNOWN INDICATION
     Dosage: 1 TAB, Q 4-6 HRS PRN FOR 30 DAYS
     Route: 048
     Dates: start: 20160702
  13. LIDOCAINE AND PRILOCAINE [Concomitant]
     Active Substance: LIDOCAINE\PRILOCAINE
     Indication: PRODUCT USED FOR UNKNOWN INDICATION
     Dosage: PRN
     Route: 061
     Dates: start: 20160828
  14. MORPHINE [Concomitant]
     Active Substance: MORPHINE
     Indication: ABDOMINAL PAIN
     Dosage: 15-30 MG, Q4H PRN
     Route: 048
  15. MORPHINE [Concomitant]
     Active Substance: MORPHINE
     Dosage: 30-45 MG, Q4H PRN
     Route: 048
     Dates: start: 20161122
  16. SIMVASTATIN. [Concomitant]
     Active Substance: SIMVASTATIN
     Indication: PRODUCT USED FOR UNKNOWN INDICATION
     Dosage: 20 MG, QD (FOR 30 DAYS)
     Route: 048
     Dates: start: 20151221
  17. DEFERASIROX [Concomitant]
     Active Substance: DEFERASIROX
     Indication: PRODUCT USED FOR UNKNOWN INDICATION
     Route: 065
  18. JAKAFI [Suspect]
     Active Substance: RUXOLITINIB
     Indication: MYELOFIBROSIS
     Dosage: 10 MG, BID
     Route: 048
     Dates: start: 20151108, end: 20160812
  19. JAKAFI [Suspect]
     Active Substance: RUXOLITINIB
     Dosage: 10 MG, BID
     Route: 048
     Dates: start: 20170113
  20. JAKAFI [Suspect]
     Active Substance: RUXOLITINIB
     Dosage: 5 MG, BID
     Route: 048
  21. ONDANSETRON HCL [Concomitant]
     Active Substance: ONDANSETRON HYDROCHLORIDE
     Indication: PRODUCT USED FOR UNKNOWN INDICATION
     Dosage: 4 MG, PRN  FOR 15 DAYS
     Route: 048
     Dates: start: 20151220
  22. JAKAFI [Suspect]
     Active Substance: RUXOLITINIB
     Dosage: 10 MG, BID
     Route: 048
     Dates: start: 20170718
  23. DESFERAL [Suspect]
     Active Substance: DEFEROXAMINE MESYLATE
     Indication: PRODUCT USED FOR UNKNOWN INDICATION
     Route: 065
  24. LENALIDOMIDE [Concomitant]
     Active Substance: LENALIDOMIDE
     Indication: PRODUCT USED FOR UNKNOWN INDICATION
     Route: 065
  25. PREDNISONE. [Concomitant]
     Active Substance: PREDNISONE
     Indication: PRODUCT USED FOR UNKNOWN INDICATION
     Route: 065
  26. MOMELOTINIB [Concomitant]
     Active Substance: MOMELOTINIB
     Indication: PRODUCT USED FOR UNKNOWN INDICATION
     Dosage: UNK
     Route: 065
     Dates: start: 201610, end: 20161122
  27. COLCHICINE. [Concomitant]
     Active Substance: COLCHICINE
     Indication: PRODUCT USED FOR UNKNOWN INDICATION
     Dosage: 2 TABS W/ACUTE FLARE, THEN 1 TAB AN HOUR LATER;  THEN1 TAB Q 12HR TILL PAIN RELIEVED
     Route: 065
     Dates: start: 20151220
  28. METOPROLOL TARTRATE. [Concomitant]
     Active Substance: METOPROLOL TARTRATE
     Indication: PRODUCT USED FOR UNKNOWN INDICATION
     Dosage: 75 MG, BID
     Route: 048
     Dates: start: 20160717
  29. PROCHLORPERAZINE MALEATE. [Concomitant]
     Active Substance: PROCHLORPERAZINE MALEATE
     Indication: PRODUCT USED FOR UNKNOWN INDICATION
     Dosage: 10 MG, Q6H (PRN)
     Route: 048
     Dates: start: 20160909
  30. INFLUENZA VACCINE [Concomitant]
     Active Substance: INFLUENZA VIRUS VACCINE
     Indication: PROPHYLAXIS
     Dosage: 0.5 ML
     Route: 030
     Dates: start: 20161109, end: 20161109

REACTIONS (28)
  - Abdominal pain [Recovering/Resolving]
  - Carotid arteriosclerosis [Unknown]
  - Pancytopenia [Unknown]
  - Anxiety [Unknown]
  - Pallor [Unknown]
  - Arthritis [Unknown]
  - Depression [Unknown]
  - Bone pain [Unknown]
  - Petechiae [Unknown]
  - Malaise [Unknown]
  - Fatigue [Unknown]
  - Leukaemia [Fatal]
  - Blood iron increased [Unknown]
  - Thrombocytopenia [Unknown]
  - Oedema peripheral [Unknown]
  - Transfusion reaction [Unknown]
  - Night sweats [Unknown]
  - Haemoglobin decreased [Unknown]
  - Gout [Unknown]
  - White blood cell count decreased [Unknown]
  - Gait disturbance [Unknown]
  - Blister [Unknown]
  - Therapeutic response decreased [Unknown]
  - Myelofibrosis [Fatal]
  - Dyspnoea exertional [Unknown]
  - Insomnia [Unknown]
  - Essential hypertension [Unknown]
  - Splenomegaly [Unknown]

NARRATIVE: CASE EVENT DATE: 20160812
